FAERS Safety Report 16894129 (Version 1)
Quarter: 2019Q4

REPORT INFORMATION
  Report Type: Spontaneous
  Country: GB (occurrence: GB)
  Receive Date: 20191008
  Receipt Date: 20191008
  Transmission Date: 20200122
  Serious: Yes (Other)
  Sender: FDA-Public Use
  Company Number: GB-MYLANLABS-2019M1092586

PATIENT
  Age: 58 Year

DRUGS (4)
  1. PALBOCICLIB [Suspect]
     Active Substance: PALBOCICLIB
     Indication: NEOPLASM MALIGNANT
     Dosage: 125 MILLIGRAM
     Dates: start: 201905
  2. LETROZOLE. [Suspect]
     Active Substance: LETROZOLE
     Indication: NEOPLASM MALIGNANT
     Dosage: UNK
     Dates: start: 201905
  3. DENOSUMAB [Suspect]
     Active Substance: DENOSUMAB
     Indication: NEOPLASM MALIGNANT
     Dosage: UNK
     Dates: start: 201905
  4. ADCAL D [Suspect]
     Active Substance: CALCIUM\CHOLECALCIFEROL
     Indication: PRODUCT USED FOR UNKNOWN INDICATION
     Dosage: UNK

REACTIONS (9)
  - Arthralgia [Unknown]
  - Neutropenia [Unknown]
  - Pruritus [Unknown]
  - Rash vesicular [Recovered/Resolved]
  - Neoplasm progression [Unknown]
  - Vomiting [Unknown]
  - Urinary tract infection [Unknown]
  - Constipation [Unknown]
  - Nausea [Unknown]
